FAERS Safety Report 11103064 (Version 1)
Quarter: 2015Q2

REPORT INFORMATION
  Report Type: Spontaneous
  Country: CH (occurrence: CH)
  Receive Date: 20150511
  Receipt Date: 20150511
  Transmission Date: 20150821
  Serious: Yes (Other)
  Sender: FDA-Public Use
  Company Number: CH-SA-2015SA060809

PATIENT
  Age: 73 Year
  Sex: Female

DRUGS (5)
  1. ESOMEP [Concomitant]
     Active Substance: ESOMEPRAZOLE
     Route: 048
  2. ASPIRIN. [Concomitant]
     Active Substance: ASPIRIN
     Route: 048
  3. CLEXANE [Suspect]
     Active Substance: ENOXAPARIN SODIUM
     Route: 058
     Dates: start: 201502, end: 201502
  4. FRAXIPARINE [Suspect]
     Active Substance: NADROPARIN CALCIUM
     Route: 058
     Dates: start: 2012, end: 2012
  5. IRFEN [Concomitant]
     Active Substance: IBUPROFEN
     Dosage: COATED TABLETS, ENTERIC

REACTIONS (5)
  - Injection site rash [Recovered/Resolved]
  - Injection site vesicles [Recovered/Resolved]
  - Skin test positive [Recovered/Resolved]
  - Type IV hypersensitivity reaction [Not Recovered/Not Resolved]
  - Injection site pustule [Recovered/Resolved]

NARRATIVE: CASE EVENT DATE: 2012
